FAERS Safety Report 5669713-8 (Version None)
Quarter: 2008Q1

REPORT INFORMATION
  Report Type: 
  Country: None (occurrence: None)
  Receive Date: 20080317
  Receipt Date: 20080307
  Transmission Date: 20080703
  Serious: Yes (Other)
  Sender: FDA-Public Use
  Company Number: PHHY2008JP02701

PATIENT
  Age: 71 Year
  Sex: Male

DRUGS (5)
  1. TOFRANIL [Suspect]
     Dosage: 25 MG/DAY
     Route: 048
  2. ANTIHYPERTENSIVES [Concomitant]
  3. EURODIN [Concomitant]
     Dosage: 2 MG
  4. BETAMAC [Concomitant]
     Dosage: 50 MG
  5. ESIDRI [Concomitant]

REACTIONS (1)
  - PARKINSON'S DISEASE [None]
